FAERS Safety Report 5366279-7 (Version None)
Quarter: 2007Q2

REPORT INFORMATION
  Report Type: 
  Country: None (occurrence: None)
  Receive Date: 20070619
  Receipt Date: 20070619
  Transmission Date: 20071010
  Serious: Yes (Death)
  Sender: FDA-Public Use
  Company Number: None

PATIENT

DRUGS (2)
  1. CARBOPLATIN [Suspect]
  2. TAXOL [Suspect]

REACTIONS (5)
  - BLOOD PRESSURE IMMEASURABLE [None]
  - HYPOTENSION [None]
  - MALAISE [None]
  - NEUTROPENIA [None]
  - URINE OUTPUT DECREASED [None]
